FAERS Safety Report 5308288-X (Version None)
Quarter: 2007Q2

REPORT INFORMATION
  Report Type: 
  Country: None (occurrence: None)
  Receive Date: 20070423
  Receipt Date: 20070423
  Transmission Date: 20071010
  Serious: Yes (Hospitalization)
  Sender: FDA-Public Use
  Company Number: None

PATIENT
  Age: 67 Year
  Sex: Male
  Weight: 116 kg

DRUGS (10)
  1. NATRECOR [Suspect]
     Indication: CARDIAC FAILURE CONGESTIVE
     Dosage: 5 UG/KGSQ ONE TIME DOSE
     Route: 058
  2. COUMADIN [Concomitant]
  3. LISINOPRIL [Concomitant]
  4. LONOXIN [Concomitant]
  5. RYTHMOL [Concomitant]
  6. LIPITOR [Concomitant]
  7. MVT [Concomitant]
  8. FISH OIL [Concomitant]
  9. NIACIN [Concomitant]
  10. ASPIRIN [Concomitant]

REACTIONS (4)
  - DIZZINESS [None]
  - DYSPNOEA [None]
  - HYPERVENTILATION [None]
  - PANIC DISORDER [None]
